FAERS Safety Report 21304463 (Version 1)
Quarter: 2022Q3

REPORT INFORMATION
  Report Type: Spontaneous
  Country: US (occurrence: None)
  Receive Date: 20220907
  Receipt Date: 20220907
  Transmission Date: 20221026
  Serious: No
  Sender: FDA-Public Use
  Company Number: US-ARIS GLOBAL-202108-1449

PATIENT
  Sex: Male

DRUGS (3)
  1. OXERVATE [Suspect]
     Active Substance: CENEGERMIN-BKBJ
     Indication: Neurotrophic keratopathy
     Route: 047
     Dates: start: 20210714
  2. OFLOXACIN [Concomitant]
     Active Substance: OFLOXACIN
     Indication: Eye infection
  3. SYSTANE (HYPROMELLOSE 2910 (4000 MPA.S)) [Concomitant]
     Active Substance: HYPROMELLOSE 2910 (4000 MPA.S)
     Dosage: DURING THE NIGHTTIME

REACTIONS (10)
  - Eye irritation [Unknown]
  - Lacrimation increased [Unknown]
  - Photophobia [Unknown]
  - Wrong technique in product usage process [Unknown]
  - Dizziness [Unknown]
  - Eye inflammation [Unknown]
  - Vertigo [Unknown]
  - Eyelid irritation [Unknown]
  - Eye pain [Unknown]
  - Eyelid pain [Unknown]
